FAERS Safety Report 15896036 (Version 7)
Quarter: 2019Q4

REPORT INFORMATION
  Report Type: Spontaneous
  Country: US (occurrence: US)
  Receive Date: 20190131
  Receipt Date: 20191104
  Transmission Date: 20200122
  Serious: No
  Sender: FDA-Public Use
  Company Number: US-STRONGBRIDGE BIOPHARMA-2019-STR-000023

PATIENT
  Age: 59 Year
  Sex: Female

DRUGS (2)
  1. KEVEYIS [Suspect]
     Active Substance: DICHLORPHENAMIDE
     Indication: FAMILIAL PERIODIC PARALYSIS
     Dosage: 75 MG, BID
     Route: 048
     Dates: start: 20170819
  2. KEVEYIS [Suspect]
     Active Substance: DICHLORPHENAMIDE
     Dosage: 50 MG, BID
     Route: 048

REACTIONS (10)
  - Feeling abnormal [Unknown]
  - Confusional state [Unknown]
  - Gastrooesophageal reflux disease [Unknown]
  - Ear pain [Unknown]
  - Memory impairment [Not Recovered/Not Resolved]
  - Lymphadenopathy [Unknown]
  - Feeling abnormal [Not Recovered/Not Resolved]
  - Exophthalmos [Unknown]
  - Dry mouth [Not Recovered/Not Resolved]
  - Oropharyngeal pain [Unknown]

NARRATIVE: CASE EVENT DATE: 20190125
